FAERS Safety Report 5606834-X (Version None)
Quarter: 2008Q1

REPORT INFORMATION
  Report Type: 
  Country: None (occurrence: None)
  Receive Date: 20080129
  Receipt Date: 20080107
  Transmission Date: 20080703
  Serious: No
  Sender: FDA-Public Use
  Company Number: US-BOEHRINGER INGELHEIM GMBH, GERMANY-2007-BP-25895BP

PATIENT
  Sex: Male

DRUGS (6)
  1. COMBIVENT [Suspect]
     Indication: EMPHYSEMA
     Route: 055
     Dates: start: 20070201
  2. ALLOPURINOL [Concomitant]
  3. ATENOLOL [Concomitant]
  4. TRIAMT HCT [Concomitant]
  5. ATACAND [Concomitant]
  6. SIMVASTATIN [Concomitant]

REACTIONS (2)
  - DRUG INEFFECTIVE [None]
  - PHARMACEUTICAL PRODUCT COMPLAINT [None]
